FAERS Safety Report 7297978-8 (Version None)
Quarter: 2011Q1

REPORT INFORMATION
  Report Type: 
  Country: None (occurrence: None)
  Receive Date: 20110217
  Receipt Date: 20110210
  Transmission Date: 20110831
  Serious: Yes (Hospitalization, Disabling, Other)
  Sender: FDA-Public Use
  Company Number: BR-JNJFOC-20110204249

PATIENT
  Age: 53 Year
  Sex: Female

DRUGS (5)
  1. SULPIRIDE [Suspect]
     Indication: SCHIZOPHRENIA
     Route: 065
  2. BIPERIDEN HYDROCHLORIDE TAB [Suspect]
     Indication: SCHIZOPHRENIA
     Route: 065
  3. HALOPERIDOL [Suspect]
     Indication: SCHIZOPHRENIA
     Route: 065
  4. LITHIUM [Suspect]
     Indication: SCHIZOPHRENIA
     Route: 065
  5. CLOZAPINE [Suspect]
     Indication: SCHIZOPHRENIA
     Route: 065

REACTIONS (1)
  - OSTEOPENIA [None]
